FAERS Safety Report 8443020-2 (Version None)
Quarter: 2012Q2

REPORT INFORMATION
  Report Type: 
  Country: None (occurrence: None)
  Receive Date: 20120615
  Receipt Date: 20120611
  Transmission Date: 20120825
  Serious: Yes (Other)
  Sender: FDA-Public Use
  Company Number: JP-PFIZER INC-2012139459

PATIENT
  Age: 55 Year
  Sex: Male

DRUGS (1)
  1. ZITHROMAX [Suspect]
     Indication: OPPORTUNISTIC INFECTION PROPHYLAXIS
     Dosage: UNK
     Route: 048

REACTIONS (2)
  - DYSPNOEA [None]
  - RESPIRATORY DISORDER [None]
